FAERS Safety Report 24971387 (Version 1)
Quarter: 2025Q1

REPORT INFORMATION
  Report Type: Spontaneous
  Country: US (occurrence: None)
  Receive Date: 20250213
  Receipt Date: 20250213
  Transmission Date: 20250409
  Serious: Yes (Other)
  Sender: FDA-CTU
  Company Number: None

PATIENT
  Age: 81 Year
  Sex: Female
  Weight: 71.6 kg

DRUGS (22)
  1. TECVAYLI [Suspect]
     Active Substance: TECLISTAMAB-CQYV
     Indication: Plasma cell myeloma
     Dosage: OTHER FREQUENCY : Q 1-2 WKS;?
     Route: 058
     Dates: start: 20231103, end: 20240528
  2. TECVAYLI [Concomitant]
     Active Substance: TECLISTAMAB-CQYV
     Dates: start: 20231124, end: 20231124
  3. TECVAYLI [Concomitant]
     Active Substance: TECLISTAMAB-CQYV
     Dates: start: 20231201, end: 20231201
  4. TECVAYLI [Concomitant]
     Active Substance: TECLISTAMAB-CQYV
     Dates: start: 20231213, end: 20231213
  5. TECVAYLI [Concomitant]
     Active Substance: TECLISTAMAB-CQYV
     Dates: start: 20231220, end: 20231220
  6. TECVAYLI [Concomitant]
     Active Substance: TECLISTAMAB-CQYV
     Dates: start: 20240111, end: 20240111
  7. TECVAYLI [Concomitant]
     Active Substance: TECLISTAMAB-CQYV
     Dates: start: 20240119, end: 20240119
  8. TECVAYLI [Concomitant]
     Active Substance: TECLISTAMAB-CQYV
     Dates: start: 20240126, end: 20240126
  9. TECVAYLI [Concomitant]
     Active Substance: TECLISTAMAB-CQYV
     Dates: start: 20240202, end: 20240202
  10. TECVAYLI [Concomitant]
     Active Substance: TECLISTAMAB-CQYV
     Dates: start: 20240209, end: 20240209
  11. TECVAYLI [Concomitant]
     Active Substance: TECLISTAMAB-CQYV
     Dates: start: 20240216, end: 20240216
  12. TECVAYLI [Concomitant]
     Active Substance: TECLISTAMAB-CQYV
     Dates: start: 20240223, end: 20240223
  13. TECVAYLI [Concomitant]
     Active Substance: TECLISTAMAB-CQYV
     Dates: start: 20240301, end: 20240301
  14. TECVAYLI [Concomitant]
     Active Substance: TECLISTAMAB-CQYV
     Dates: start: 20240311, end: 20240311
  15. TECVAYLI [Concomitant]
     Active Substance: TECLISTAMAB-CQYV
     Dates: start: 20240318, end: 20240318
  16. TECVAYLI [Concomitant]
     Active Substance: TECLISTAMAB-CQYV
     Dates: start: 20240325, end: 20240325
  17. TECVAYLI [Concomitant]
     Active Substance: TECLISTAMAB-CQYV
     Dates: start: 20240401, end: 20240401
  18. TECVAYLI [Concomitant]
     Active Substance: TECLISTAMAB-CQYV
     Dates: start: 20240415, end: 20240415
  19. TECVAYLI [Concomitant]
     Active Substance: TECLISTAMAB-CQYV
     Dates: start: 20240429, end: 20240429
  20. TECVAYLI [Concomitant]
     Active Substance: TECLISTAMAB-CQYV
     Dates: start: 20240513, end: 20240513
  21. TECVAYLI [Concomitant]
     Active Substance: TECLISTAMAB-CQYV
     Dates: start: 20240528, end: 20240528
  22. DULOXETINE [Suspect]
     Active Substance: DULOXETINE

REACTIONS (4)
  - Pain in extremity [None]
  - Gait disturbance [None]
  - Haemorrhagic stroke [None]
  - Hospice care [None]

NARRATIVE: CASE EVENT DATE: 20240529
